APPROVED DRUG PRODUCT: TYLENOL W/ CODEINE
Active Ingredient: ACETAMINOPHEN; CODEINE PHOSPHATE
Strength: 325MG;15MG **Federal Register determination that product was not discontinued or withdrawn for safety or effectiveness reasons**
Dosage Form/Route: TABLET;ORAL
Application: A085056 | Product #002
Applicant: ORTHO MCNEIL PHARMACEUTICAL INC
Approved: Approved Prior to Jan 1, 1982 | RLD: No | RS: No | Type: DISCN